FAERS Safety Report 14072506 (Version 1)
Quarter: 2017Q4

REPORT INFORMATION
  Report Type: Spontaneous
  Country: DE (occurrence: DE)
  Receive Date: 20171011
  Receipt Date: 20171011
  Transmission Date: 20180321
  Serious: Yes (Congenital Anomaly, Other)
  Sender: FDA-Public Use
  Company Number: DE-TORRENT-00007195

PATIENT
  Sex: Male
  Weight: 3 kg

DRUGS (6)
  1. IBUPROFEN. [Concomitant]
     Active Substance: IBUPROFEN
  2. VOMEX A [Concomitant]
     Active Substance: DIMENHYDRINATE
  3. FOLIO FORTE [Concomitant]
     Active Substance: FOLIC ACID\VITAMINS
  4. AMPICILLIN [Concomitant]
     Active Substance: AMPICILLIN
  5. VENLAFAXINE [Suspect]
     Active Substance: VENLAFAXINE HYDROCHLORIDE
  6. HUMINSULIN BASAL [Concomitant]
     Active Substance: INSULIN NOS

REACTIONS (5)
  - Infantile apnoea [Recovered/Resolved]
  - Drug withdrawal syndrome neonatal [Recovered/Resolved]
  - Congenital skin dimples [Not Recovered/Not Resolved]
  - Agitation neonatal [Recovered/Resolved]
  - Foetal exposure during pregnancy [Unknown]
